FAERS Safety Report 5721766-4 (Version None)
Quarter: 2008Q2

REPORT INFORMATION
  Report Type: 
  Country: None (occurrence: None)
  Receive Date: 20080429
  Receipt Date: 20080417
  Transmission Date: 20081010
  Serious: Yes (Hospitalization)
  Sender: FDA-Public Use
  Company Number: IT-ROCHE-560293

PATIENT
  Age: 45 Year
  Sex: Female

DRUGS (3)
  1. TRETINOIN [Suspect]
     Route: 048
  2. IDARUBICIN HCL [Suspect]
     Dosage: 12MG/M2 ON DAY 2, 4, 6 AND 8
     Route: 065
  3. TRANEXAMIC ACID [Concomitant]
     Dosage: START DATE: AT DIAGNOSIS OF ACUTE PROMYELOCYTIC LEUKAEMIA. STOP DATE: DAY 2 OF TRETINOIN TREATMENT.

REACTIONS (1)
  - HAEMOLYTIC URAEMIC SYNDROME [None]
